FAERS Safety Report 16307444 (Version 2)
Quarter: 2019Q2

REPORT INFORMATION
  Report Type: Spontaneous
  Country: US (occurrence: US)
  Receive Date: 20190514
  Receipt Date: 20190612
  Transmission Date: 20190711
  Serious: No
  Sender: FDA-Public Use
  Company Number: US-BIOGEN-203197

PATIENT
  Age: 46 Year
  Sex: Female
  Weight: 55.84 kg

DRUGS (6)
  1. AVONEX [Suspect]
     Active Substance: INTERFERON BETA-1A
     Route: 030
     Dates: start: 20010314
  2. AVONEX [Suspect]
     Active Substance: INTERFERON BETA-1A
     Route: 030
     Dates: end: 20130314
  3. AVONEX [Suspect]
     Active Substance: INTERFERON BETA-1A
     Route: 030
     Dates: start: 20170316
  4. AVONEX [Suspect]
     Active Substance: INTERFERON BETA-1A
     Indication: MULTIPLE SCLEROSIS
     Route: 030
     Dates: start: 1996
  5. AVONEX [Suspect]
     Active Substance: INTERFERON BETA-1A
     Route: 030
     Dates: end: 2004
  6. AVONEX [Suspect]
     Active Substance: INTERFERON BETA-1A
     Route: 030
     Dates: start: 2004

REACTIONS (9)
  - Multiple sclerosis relapse [Not Recovered/Not Resolved]
  - Product dose omission [Unknown]
  - Muscle disorder [Recovered/Resolved]
  - Adverse reaction [Recovered/Resolved with Sequelae]
  - Feeling hot [Not Recovered/Not Resolved]
  - Injection site injury [Unknown]
  - Influenza like illness [Unknown]
  - Taste disorder [Not Recovered/Not Resolved]
  - Device breakage [Unknown]

NARRATIVE: CASE EVENT DATE: 20010314
